FAERS Safety Report 14505817 (Version 1)
Quarter: 2018Q1

REPORT INFORMATION
  Report Type: Spontaneous
  Country: US (occurrence: US)
  Receive Date: 20180208
  Receipt Date: 20180208
  Transmission Date: 20180509
  Serious: Yes (Hospitalization)
  Sender: FDA-Public Use
  Company Number: US-FRESENIUS KABI-FK201801533

PATIENT
  Age: 5 Decade
  Sex: Male

DRUGS (2)
  1. DOCETAXEL. [Suspect]
     Active Substance: DOCETAXEL
     Indication: MALIGNANT NEOPLASM OF PLEURA
  2. GEMCITABINE [Suspect]
     Active Substance: GEMCITABINE\GEMCITABINE HYDROCHLORIDE
     Indication: MALIGNANT NEOPLASM OF PLEURA
     Route: 065

REACTIONS (10)
  - Fatigue [Unknown]
  - Acute kidney injury [Unknown]
  - Nausea [Unknown]
  - Oral candidiasis [Unknown]
  - Hypophagia [Unknown]
  - Pneumonia [Unknown]
  - Stomatitis [Unknown]
  - Dehydration [Unknown]
  - Febrile neutropenia [Unknown]
  - Vomiting [Unknown]
